FAERS Safety Report 4378868-7 (Version None)
Quarter: 2004Q2

REPORT INFORMATION
  Report Type: 
  Country: None (occurrence: None)
  Receive Date: 20040610
  Receipt Date: 20040527
  Transmission Date: 20050107
  Serious: Yes (Hospitalization)
  Sender: FDA-Public Use
  Company Number: 237320

PATIENT
  Age: 31 Year
  Sex: Male
  Weight: 141 kg

DRUGS (15)
  1. NORDITROPIN SIMPLE XX(SOMATROPIN) SOLUTION FOR INJECTION, 3.3 MG/ML [Suspect]
     Indication: GROWTH HORMONE DEFICIENCY
     Dosage: SEE IMAGE
     Dates: start: 20031002, end: 20031101
  2. NORDITROPIN SIMPLE XX(SOMATROPIN) SOLUTION FOR INJECTION, 3.3 MG/ML [Suspect]
     Indication: GROWTH HORMONE DEFICIENCY
     Dosage: SEE IMAGE
     Dates: start: 20031101
  3. PROZAC [Concomitant]
  4. PAROXETINE HCL [Concomitant]
  5. OXAZEPAM [Concomitant]
  6. STILNOX/FRA/(ZOLPIDEM) [Concomitant]
  7. HYDROCORTISONE [Concomitant]
  8. LEVOTHYROXINE SODIUM [Concomitant]
  9. MINIRIN ^AVENTIS PHARMA^ (DESMOPRESSIN ACETATE) [Concomitant]
  10. ANDROTARDYL (TESTOSTERONE ENANTATE) [Concomitant]
  11. POTASSIUM CHLORIDE [Concomitant]
  12. OMEPRAZOLE [Concomitant]
  13. ACETAMINOPHEN [Concomitant]
  14. AUGMENT/SCH/ (AMOXICILLIN, CLAVULANATE POTASSIUM) [Concomitant]
  15. BRONCHOKOD (CARBOCISTEINE) [Concomitant]

REACTIONS (2)
  - CONDITION AGGRAVATED [None]
  - DEPRESSION [None]
